FAERS Safety Report 16216086 (Version 3)
Quarter: 2019Q2

REPORT INFORMATION
  Report Type: Spontaneous
  Country: AR (occurrence: AR)
  Receive Date: 20190419
  Receipt Date: 20190527
  Transmission Date: 20190711
  Serious: Yes (Death, Other)
  Sender: FDA-Public Use
  Company Number: AR-ABBVIE-19K-007-2749796-00

PATIENT
  Age: 90 Year

DRUGS (2)
  1. VENETOCLAX. [Suspect]
     Active Substance: VENETOCLAX
     Dosage: TREATMENT ESCALATION FROM 100 MG
     Route: 048
     Dates: start: 2019
  2. VENETOCLAX. [Suspect]
     Active Substance: VENETOCLAX
     Indication: CHRONIC LYMPHOCYTIC LEUKAEMIA REFRACTORY
     Dosage: TREATMENT ESCALATION, UP TO 100 MG
     Route: 048
     Dates: start: 201903, end: 2019

REACTIONS (6)
  - Pneumonia [Recovered/Resolved]
  - Laboratory test abnormal [Recovered/Resolved]
  - Tumour lysis syndrome [Recovered/Resolved]
  - Hypercalcaemia [Recovered/Resolved]
  - Renal failure [Recovered/Resolved]
  - Cardiac disorder [Fatal]

NARRATIVE: CASE EVENT DATE: 2019
